FAERS Safety Report 6675120-1 (Version None)
Quarter: 2010Q2

REPORT INFORMATION
  Report Type: 
  Country: None (occurrence: None)
  Receive Date: 20100409
  Receipt Date: 20100331
  Transmission Date: 20101027
  Serious: Yes (Hospitalization)
  Sender: FDA-Public Use
  Company Number: FR-ABBOTT-10P-056-0633321-00

PATIENT
  Age: 75 Year
  Sex: Male

DRUGS (7)
  1. DEPAKENE [Suspect]
     Indication: EPILEPSY
     Dates: start: 19820101
  2. DEPAKENE [Interacting]
  3. ASPIRIN [Interacting]
     Indication: PERICARDIAL EFFUSION
  4. ASPIRIN [Interacting]
  5. FLUOXETINE [Concomitant]
     Indication: DRUG USE FOR UNKNOWN INDICATION
  6. ALLOPURINOL [Concomitant]
     Indication: DRUG USE FOR UNKNOWN INDICATION
  7. TAMSULOSIN HYDROCHLORIDE [Concomitant]
     Indication: DRUG USE FOR UNKNOWN INDICATION

REACTIONS (3)
  - DEMENTIA [None]
  - DRUG INTERACTION [None]
  - EXTRAPYRAMIDAL DISORDER [None]
